FAERS Safety Report 7470451-X (Version None)
Quarter: 2011Q2

REPORT INFORMATION
  Report Type: 
  Country: None (occurrence: None)
  Receive Date: 20110510
  Receipt Date: 20110411
  Transmission Date: 20111010
  Serious: No
  Sender: FDA-Public Use
  Company Number: US-BAYER-2011-032286

PATIENT
  Age: 87 Year
  Sex: Female

DRUGS (9)
  1. DIGOXIN [Concomitant]
     Route: 048
  2. FEBUXOSTAT [Concomitant]
     Route: 048
  3. ANTIHYPERTENSIVES [Concomitant]
     Dosage: UNK
     Route: 048
  4. METFORMIN HCL [Concomitant]
     Route: 048
  5. CARVEDILOL [Concomitant]
     Dosage: UNK
     Route: 048
  6. FUROSEMIDE [Concomitant]
     Dosage: UNK
     Route: 048
  7. ALEVE (CAPLET) [Suspect]
     Indication: ARTHRITIS
     Dosage: 2 DF, QD
  8. SPIRONOLACTONE [Concomitant]
     Dosage: UNK
     Route: 048
  9. GLYBURIDE [Concomitant]

REACTIONS (1)
  - NO ADVERSE EVENT [None]
